FAERS Safety Report 5209836-0 (Version None)
Quarter: 2006Q4

REPORT INFORMATION
  Report Type: 
  Country: None (occurrence: None)
  Receive Date: 20061130
  Receipt Date: 20051108
  Transmission Date: 20070319
  Serious: Yes (Hospitalization)
  Sender: FDA-Public Use
  Company Number: 2005153298

PATIENT
  Sex: Male

DRUGS (1)
  1. ZYVOX [Suspect]
     Indication: INFECTION
     Dosage: 120 MG (600 MG, 2 IN 1 D); ORAL
     Route: 048
     Dates: start: 20050101, end: 20050101

REACTIONS (1)
  - INFECTION [None]
